FAERS Safety Report 6077252-8 (Version None)
Quarter: 2009Q1

REPORT INFORMATION
  Report Type: 
  Country: None (occurrence: None)
  Receive Date: 20090213
  Receipt Date: 20090206
  Transmission Date: 20090719
  Serious: Yes (Death, Hospitalization)
  Sender: FDA-Public Use
  Company Number: A0734384A

PATIENT
  Age: 56 Year
  Sex: Male
  Weight: 81.8 kg

DRUGS (3)
  1. AVANDIA [Suspect]
     Dosage: 4MG PER DAY
     Route: 048
     Dates: start: 20030506, end: 20030918
  2. AVANDAMET [Suspect]
     Route: 065
     Dates: start: 20030811, end: 20030908
  3. FLUOXETINE HCL [Concomitant]
     Dates: start: 20020601, end: 20040121

REACTIONS (5)
  - ANXIETY [None]
  - CARDIAC FAILURE CONGESTIVE [None]
  - HEART INJURY [None]
  - MYOCARDIAL INFARCTION [None]
  - PAIN [None]
